FAERS Safety Report 25256893 (Version 1)
Quarter: 2025Q2

REPORT INFORMATION
  Report Type: Report from Study
  Country: US (occurrence: US)
  Receive Date: 20250430
  Receipt Date: 20250430
  Transmission Date: 20250716
  Serious: Yes (Other)
  Sender: UCB
  Company Number: US-UCBSA-2025024991

PATIENT
  Age: 26 Year
  Sex: Male

DRUGS (1)
  1. BRIVARACETAM [Suspect]
     Active Substance: BRIVARACETAM
     Indication: Seizure
     Dosage: 100 MILLIGRAM, 1 TABLET, 2X/DAY (BID)

REACTIONS (3)
  - Seizure [Unknown]
  - Neck injury [Unknown]
  - Limb injury [Unknown]

NARRATIVE: CASE EVENT DATE: 20250422
